FAERS Safety Report 10665350 (Version 2)
Quarter: 2015Q3

REPORT INFORMATION
  Report Type: Spontaneous
  Country: JP (occurrence: JP)
  Receive Date: 20141219
  Receipt Date: 20150812
  Transmission Date: 20151125
  Serious: Yes (Death, Other)
  Sender: FDA-Public Use
  Company Number: JP-ELI_LILLY_AND_COMPANY-JP201412007053

PATIENT
  Age: 65 Year
  Sex: Male

DRUGS (2)
  1. ADCIRCA [Suspect]
     Active Substance: TADALAFIL
     Dosage: 40 MG, QD
     Route: 048
     Dates: end: 20141127
  2. ADCIRCA [Suspect]
     Active Substance: TADALAFIL
     Indication: CHRONIC OBSTRUCTIVE PULMONARY DISEASE
     Dosage: 20 MG, QD
     Route: 048
     Dates: start: 201405

REACTIONS (3)
  - Ventricular fibrillation [Fatal]
  - Hypoxia [Unknown]
  - Off label use [Unknown]

NARRATIVE: CASE EVENT DATE: 20141127
